FAERS Safety Report 10084982 (Version 1)
Quarter: 2014Q2

REPORT INFORMATION
  Report Type: Report from Study
  Country: CA (occurrence: CA)
  Receive Date: 20140417
  Receipt Date: 20140417
  Transmission Date: 20141212
  Serious: Yes (Death)
  Sender: FDA-Public Use
  Company Number: CA-B.I. PHARMACEUTICALS,INC./RIDGEFIELD-2014-BI-17243CN

PATIENT
  Age: 51 Year
  Sex: Male

DRUGS (1)
  1. GIOTRIF [Suspect]
     Indication: LUNG CANCER METASTATIC
     Dosage: 30 MG
     Route: 048
     Dates: start: 20140409, end: 20140413

REACTIONS (1)
  - Death [Fatal]
